FAERS Safety Report 11088225 (Version 2)
Quarter: 2015Q2

REPORT INFORMATION
  Report Type: Spontaneous
  Country: IN (occurrence: IN)
  Receive Date: 20150504
  Receipt Date: 20150506
  Transmission Date: 20150821
  Serious: Yes (Hospitalization, Other)
  Sender: FDA-Public Use
  Company Number: IN-PFIZER INC-2015108533

PATIENT
  Age: 35 Year
  Sex: Male

DRUGS (9)
  1. SUTENT [Suspect]
     Active Substance: SUNITINIB MALATE
     Dosage: UNK
  2. ATORVASTATIN [Concomitant]
     Active Substance: ATORVASTATIN
     Dosage: 40 MG, UNK
     Dates: start: 201202
  3. ESOMEPRAZOLE [Concomitant]
     Active Substance: ESOMEPRAZOLE
     Dosage: 40 MG, UNK
     Dates: start: 201202
  4. SUTENT [Suspect]
     Active Substance: SUNITINIB MALATE
     Dosage: 50 MG, UNK
  5. DOMSTAL-P [Concomitant]
     Dosage: 20 MG, UNK
     Dates: start: 201202
  6. SUTENT [Suspect]
     Active Substance: SUNITINIB MALATE
     Indication: METASTATIC RENAL CELL CARCINOMA
     Dosage: 50 MG, UNK
     Dates: start: 201102
  7. ELTROXIN [Concomitant]
     Active Substance: LEVOTHYROXINE
     Dosage: 125 ?G, UNK
     Dates: start: 201202
  8. OLMESAR [Concomitant]
     Dosage: 40 MG, UNK
     Dates: start: 201202
  9. SUTENT [Suspect]
     Active Substance: SUNITINIB MALATE
     Dosage: 37.5 MG, UNK

REACTIONS (18)
  - Haematemesis [Unknown]
  - Headache [Unknown]
  - Blood cholesterol increased [Unknown]
  - Hypothyroidism [Unknown]
  - Ageusia [Unknown]
  - Metastatic renal cell carcinoma [Unknown]
  - Furuncle [Unknown]
  - Flatulence [Unknown]
  - Hypertension [Unknown]
  - Tongue disorder [Unknown]
  - Gastric ulcer [Unknown]
  - Nausea [Unknown]
  - Skin fissures [Unknown]
  - Abdominal pain upper [Unknown]
  - Gastritis [Unknown]
  - Disease progression [Unknown]
  - Eructation [Unknown]
  - Decreased appetite [Unknown]
